FAERS Safety Report 6410484-5 (Version None)
Quarter: 2009Q4

REPORT INFORMATION
  Report Type: 
  Country: None (occurrence: None)
  Receive Date: 20091020
  Receipt Date: 20091020
  Transmission Date: 20100525
  Serious: No
  Sender: FDA-Public Use
  Company Number: None

PATIENT
  Age: 59 Year
  Sex: Female

DRUGS (1)
  1. FERRLECIT [Suspect]
     Indication: IRON DEFICIENCY ANAEMIA
     Dosage: 125MG TWICE WEEKLY IV
     Route: 042
     Dates: start: 20090526, end: 20090820

REACTIONS (5)
  - CHEST DISCOMFORT [None]
  - CHILLS [None]
  - ERYTHEMA [None]
  - FEELING ABNORMAL [None]
  - NAUSEA [None]
